FAERS Safety Report 24226579 (Version 2)
Quarter: 2024Q3

REPORT INFORMATION
  Report Type: Spontaneous
  Country: CA (occurrence: CA)
  Receive Date: 20240820
  Receipt Date: 20240821
  Transmission Date: 20241016
  Serious: Yes (Death, Other)
  Sender: NOVARTIS
  Company Number: CA-SANDOZ-SDZ2024CA042924

PATIENT
  Age: 70 Year
  Sex: Female

DRUGS (10)
  1. SECUKINUMAB [Suspect]
     Active Substance: SECUKINUMAB
     Indication: Lichen planus
     Dosage: UNK
     Route: 065
  2. CYCLOSPORINE [Suspect]
     Active Substance: CYCLOSPORINE
     Indication: Lichen planus
     Dosage: UNK
     Route: 065
  3. CYCLOSPORINE [Suspect]
     Active Substance: CYCLOSPORINE
     Dosage: UNK
     Route: 065
  4. AZATHIOPRINE [Suspect]
     Active Substance: AZATHIOPRINE
     Indication: Lichen planus
     Dosage: UNK
     Route: 065
  5. METHOTREXATE [Suspect]
     Active Substance: METHOTREXATE
     Indication: Lichen planus
     Dosage: UNK
     Route: 065
  6. HUMAN IMMUNOGLOBULIN G [Suspect]
     Active Substance: HUMAN IMMUNOGLOBULIN G
     Indication: Lichen planus
     Dosage: UNK
     Route: 042
  7. SULFASALAZINE [Suspect]
     Active Substance: SULFASALAZINE
     Indication: Lichen planus
     Dosage: UNK
     Route: 065
  8. ACITRETIN [Suspect]
     Active Substance: ACITRETIN
     Indication: Lichen planus
     Dosage: UNK
     Route: 065
  9. HYDROXYCHLOROQUINE [Suspect]
     Active Substance: HYDROXYCHLOROQUINE
     Indication: Lichen planus
     Dosage: UNK
     Route: 065
  10. METHOTREXATE [Concomitant]
     Active Substance: METHOTREXATE
     Indication: Lichen planus
     Dosage: UNK
     Route: 065

REACTIONS (5)
  - Death [Fatal]
  - Drug ineffective for unapproved indication [Fatal]
  - Squamous cell carcinoma of the oral cavity [Unknown]
  - Drug ineffective [Unknown]
  - Off label use [Unknown]
